FAERS Safety Report 5113264-6 (Version None)
Quarter: 2006Q3

REPORT INFORMATION
  Report Type: 
  Country: None (occurrence: None)
  Receive Date: 20060920
  Receipt Date: 20060906
  Transmission Date: 20061208
  Serious: Yes (Hospitalization)
  Sender: FDA-Public Use
  Company Number: 230206M06USA

PATIENT
  Age: 56 Year
  Sex: Female

DRUGS (6)
  1. REBIF [Suspect]
     Indication: MULTIPLE SCLEROSIS
     Dosage: 8.8 MCG, 3 IN 1 WEEKS, SUBCUTANEOUS
     Route: 058
     Dates: start: 20060721
  2. GABAPENTIN [Concomitant]
  3. IRON (IRON) [Concomitant]
  4. LISINOPRIL [Concomitant]
  5. BACLOFEN [Concomitant]
  6. DETROL [Concomitant]

REACTIONS (2)
  - TREATMENT NONCOMPLIANCE [None]
  - URINARY TRACT INFECTION [None]
